FAERS Safety Report 23966300 (Version 1)
Quarter: 2024Q2

REPORT INFORMATION
  Report Type: Spontaneous
  Country: US (occurrence: US)
  Receive Date: 20240612
  Receipt Date: 20240612
  Transmission Date: 20240716
  Serious: No
  Sender: FDA-Public Use
  Company Number: US-SANDOZ-SDZ2024US056981

PATIENT
  Sex: Female

DRUGS (1)
  1. ESTRADIOL [Suspect]
     Active Substance: ESTRADIOL
     Indication: Product used for unknown indication
     Dosage: UNK, 0.05MG/1D 4TTSM US, FREQUENCY: 1X A WEEKLENGTH OF TREATMENT
     Route: 065

REACTIONS (5)
  - Malaise [Unknown]
  - Migraine [Unknown]
  - Drug ineffective [Unknown]
  - Product adhesion issue [Unknown]
  - Product contamination physical [Unknown]
